FAERS Safety Report 5514412-6 (Version None)
Quarter: 2007Q4

REPORT INFORMATION
  Report Type: 
  Country: None (occurrence: None)
  Receive Date: 20071113
  Receipt Date: 20070511
  Transmission Date: 20080405
  Serious: No
  Sender: FDA-Public Use
  Company Number: A0651042A

PATIENT
  Age: 53 Year
  Sex: Female

DRUGS (7)
  1. COREG [Suspect]
     Indication: EJECTION FRACTION DECREASED
     Dosage: 9.375MG TWICE PER DAY
     Route: 048
     Dates: start: 20020101
  2. BENICAR [Concomitant]
  3. DAILY MULTIVITAMIN [Concomitant]
  4. MAGNESIUM OXIDE [Concomitant]
  5. GLUCOSAMINE [Concomitant]
  6. OMEGA-3 [Concomitant]
  7. BLACK COHOSH [Concomitant]

REACTIONS (4)
  - DIZZINESS [None]
  - FLUID RETENTION [None]
  - WEIGHT INCREASED [None]
  - WEIGHT LOSS POOR [None]
